FAERS Safety Report 12619336 (Version 1)
Quarter: 2016Q3

REPORT INFORMATION
  Report Type: Spontaneous
  Country: US (occurrence: US)
  Receive Date: 20160803
  Receipt Date: 20160803
  Transmission Date: 20161109
  Serious: Yes (Other)
  Sender: FDA-Public Use
  Company Number: US-SA-2016SA136502

PATIENT
  Sex: Female

DRUGS (5)
  1. SOLOSTAR [Concomitant]
     Active Substance: DEVICE
     Indication: DIABETES MELLITUS
  2. TOUJEO [Suspect]
     Active Substance: INSULIN GLARGINE
     Indication: DIABETES MELLITUS
     Route: 065
  3. SOLOSTAR [Concomitant]
     Active Substance: DEVICE
  4. PROLIA [Concomitant]
     Active Substance: DENOSUMAB
     Dates: start: 2016
  5. LANTUS SOLOSTAR [Concomitant]
     Active Substance: INSULIN GLARGINE

REACTIONS (5)
  - Gait disturbance [Unknown]
  - Pain [Unknown]
  - Arthritis [Not Recovered/Not Resolved]
  - Gallbladder disorder [Unknown]
  - Osteoporosis [Unknown]
